FAERS Safety Report 17634490 (Version 2)
Quarter: 2020Q2

REPORT INFORMATION
  Report Type: Report from Study
  Country: US (occurrence: US)
  Receive Date: 20200406
  Receipt Date: 20200512
  Transmission Date: 20200713
  Serious: Yes (Hospitalization)
  Sender: FDA-Public Use
  Company Number: US-ACTELION-A-NJ2018-178737

PATIENT
  Age: 69 Year
  Sex: Female
  Weight: 127.89 kg

DRUGS (8)
  1. UPTRAVI [Suspect]
     Active Substance: SELEXIPAG
     Dosage: 1600 MCG, QPM
     Route: 048
  2. UPTRAVI [Suspect]
     Active Substance: SELEXIPAG
     Indication: PULMONARY ARTERIAL HYPERTENSION
     Dosage: 1000 MCG, BID
     Route: 048
  3. UPTRAVI [Suspect]
     Active Substance: SELEXIPAG
     Dosage: 800 MCG, BID
     Route: 048
  4. UPTRAVI [Suspect]
     Active Substance: SELEXIPAG
     Dosage: 1600 MCG, BID
     Route: 048
  5. UPTRAVI [Suspect]
     Active Substance: SELEXIPAG
     Dosage: 1400 MCG, QAM
     Route: 048
  6. UPTRAVI [Suspect]
     Active Substance: SELEXIPAG
     Dosage: 1200 MCG, BID
     Route: 048
  7. UPTRAVI [Suspect]
     Active Substance: SELEXIPAG
     Dosage: 400 MCG, BID
     Route: 048
  8. ADCIRCA [Concomitant]
     Active Substance: TADALAFIL

REACTIONS (16)
  - Dyspnoea [Unknown]
  - Fluid retention [Recovered/Resolved]
  - Weight decreased [Recovering/Resolving]
  - Pulmonary embolism [Unknown]
  - Oedema peripheral [Unknown]
  - Malaise [Unknown]
  - Arthropathy [Not Recovered/Not Resolved]
  - Chest discomfort [Unknown]
  - Thrombosis [Unknown]
  - Therapeutic response unexpected [Unknown]
  - Injury [Unknown]
  - Abdominal discomfort [Unknown]
  - Arthralgia [Unknown]
  - Depression [Unknown]
  - Diarrhoea [Unknown]
  - Headache [Recovering/Resolving]

NARRATIVE: CASE EVENT DATE: 201912
